FAERS Safety Report 19280002 (Version 8)
Quarter: 2025Q2

REPORT INFORMATION
  Report Type: Spontaneous
  Country: PL (occurrence: PL)
  Receive Date: 20210520
  Receipt Date: 20250516
  Transmission Date: 20250717
  Serious: Yes (Other)
  Sender: ROCHE
  Company Number: PL-ROCHE-2832798

PATIENT
  Age: 6 Year
  Sex: Male

DRUGS (3)
  1. HEMLIBRA [Suspect]
     Active Substance: EMICIZUMAB-KXWH
     Indication: Factor VIII deficiency
     Route: 058
     Dates: start: 20200330
  2. HEMLIBRA [Suspect]
     Active Substance: EMICIZUMAB-KXWH
     Route: 058
     Dates: start: 20210510
  3. HEMLIBRA [Suspect]
     Active Substance: EMICIZUMAB-KXWH
     Route: 065

REACTIONS (6)
  - Humerus fracture [Not Recovered/Not Resolved]
  - Tooth extraction [Unknown]
  - Haemorrhage [Unknown]
  - Joint swelling [Unknown]
  - Viral infection [Unknown]
  - Dandruff [Unknown]

NARRATIVE: CASE EVENT DATE: 20210516
